FAERS Safety Report 4879185-9 (Version None)
Quarter: 2006Q1

REPORT INFORMATION
  Report Type: 
  Country: None (occurrence: None)
  Receive Date: 20060112
  Receipt Date: 20051028
  Transmission Date: 20060701
  Serious: Yes (Life-Threatening, Hospitalization)
  Sender: FDA-Public Use
  Company Number: US-ROCHE-426625

PATIENT
  Age: 44 Year
  Sex: Male
  Weight: 43 kg

DRUGS (2)
  1. CAPECITABINE [Suspect]
     Route: 048
     Dates: start: 20051011
  2. TAXOTERE [Suspect]
     Route: 042
     Dates: start: 20051011

REACTIONS (4)
  - ACIDOSIS [None]
  - INFECTION [None]
  - NEUTROPENIA [None]
  - WHITE BLOOD CELL COUNT DECREASED [None]
